FAERS Safety Report 7410946-8 (Version None)
Quarter: 2011Q2

REPORT INFORMATION
  Report Type: 
  Country: None (occurrence: None)
  Receive Date: 20110413
  Receipt Date: 20110216
  Transmission Date: 20111010
  Serious: Yes (Hospitalization, Other)
  Sender: FDA-Public Use
  Company Number: US-BAYER-201022688NA

PATIENT
  Age: 27 Year
  Sex: Female
  Weight: 122.45 kg

DRUGS (7)
  1. YASMIN [Suspect]
     Indication: CONTRACEPTION
     Dosage: UNK, QD
     Route: 048
     Dates: start: 20061001, end: 20070101
  2. IBUPROFEN [Concomitant]
     Dosage: 800 MG, TID
     Dates: start: 20081226
  3. YASMIN [Suspect]
     Indication: ACNE
  4. PREDNISONE [Concomitant]
     Dosage: 20 MG, UNK
     Dates: start: 20081226
  5. YAZ [Suspect]
     Indication: CONTRACEPTION
     Dosage: UNK UNK, QD
     Route: 048
     Dates: start: 20071001, end: 20090101
  6. YAZ [Suspect]
     Indication: ACNE
  7. LORTAB [Concomitant]
     Dosage: 5 MG, UNK
     Route: 048
     Dates: start: 20081226

REACTIONS (1)
  - DEEP VEIN THROMBOSIS [None]
